FAERS Safety Report 5581653-1 (Version None)
Quarter: 2008Q1

REPORT INFORMATION
  Report Type: 
  Country: None (occurrence: None)
  Receive Date: 20080104
  Receipt Date: 20071227
  Transmission Date: 20080703
  Serious: Yes (Death, Other)
  Sender: FDA-Public Use
  Company Number: US-AVENTIS-200721329GDDC

PATIENT
  Age: 60 Year
  Sex: Male
  Weight: 56.8 kg

DRUGS (2)
  1. DOCETAXEL [Suspect]
     Dosage: DOSE: 84 MG AS TOTAL DOSE GIVEN THIS COURSE
     Route: 042
     Dates: start: 20071205, end: 20071205
  2. CODE UNBROKEN [Suspect]
     Dosage: DOSE: 1750 MG AS TOTAL DOSE GIVEN THIS COURSE
     Route: 048
     Dates: start: 20071024, end: 20071206

REACTIONS (4)
  - DIARRHOEA [None]
  - ELECTROLYTE IMBALANCE [None]
  - SUDDEN DEATH [None]
  - VOMITING [None]
